FAERS Safety Report 4751639-5 (Version None)
Quarter: 2005Q3

REPORT INFORMATION
  Report Type: 
  Country: None (occurrence: None)
  Receive Date: 20050824
  Receipt Date: 20050816
  Transmission Date: 20060218
  Serious: Yes (Other)
  Sender: FDA-Public Use
  Company Number: GB-JNJFOC-20050802115

PATIENT
  Age: 47 Year

DRUGS (6)
  1. DURAGESIC-100 [Suspect]
     Route: 062
  2. DURAGESIC-100 [Suspect]
     Route: 062
  3. DURAGESIC-100 [Suspect]
     Route: 062
  4. DURAGESIC-100 [Suspect]
     Indication: PAIN
     Route: 062
  5. DURAGESIC-100 [Suspect]
     Indication: PAIN
     Route: 062
  6. ORAMORPH SR [Concomitant]
     Indication: THERAPEUTIC RESPONSE DECREASED
     Route: 065

REACTIONS (13)
  - AGEUSIA [None]
  - ANAL INJURY [None]
  - ANOREXIA [None]
  - COLD SWEAT [None]
  - CONSTIPATION [None]
  - DEPRESSION [None]
  - DRUG INEFFECTIVE [None]
  - FEAR [None]
  - LOSS OF LIBIDO [None]
  - MORBID THOUGHTS [None]
  - PHARMACEUTICAL PRODUCT COMPLAINT [None]
  - POLLAKIURIA [None]
  - SUICIDAL IDEATION [None]
